FAERS Safety Report 15449392 (Version 1)
Quarter: 2018Q4

REPORT INFORMATION
  Report Type: Spontaneous
  Country: IT (occurrence: IT)
  Receive Date: 20181001
  Receipt Date: 20181001
  Transmission Date: 20190204
  Serious: Yes (Life-Threatening)
  Sender: FDA-Public Use
  Company Number: IT-TEVA-2018-IT-959593

PATIENT
  Age: 32 Year
  Sex: Female

DRUGS (3)
  1. SERTRALINE HYDROCHLORIDE. [Concomitant]
     Active Substance: SERTRALINE HYDROCHLORIDE
     Route: 065
  2. OLANZAPINEOLANZAPINE TEVA 2.5 MG FILM-COATED TABLETS [Suspect]
     Active Substance: OLANZAPINE
     Dates: start: 20150501, end: 20151001
  3. DELORAZEPAM [Concomitant]
     Active Substance: DELORAZEPAM
     Route: 065

REACTIONS (3)
  - Mood altered [Unknown]
  - Personality disorder [Unknown]
  - Drug ineffective [Unknown]

NARRATIVE: CASE EVENT DATE: 20151001
